FAERS Safety Report 8016558-X (Version None)
Quarter: 2011Q4

REPORT INFORMATION
  Report Type: 
  Country: None (occurrence: None)
  Receive Date: 20111230
  Receipt Date: 20111227
  Transmission Date: 20120403
  Serious: No
  Sender: FDA-Public Use
  Company Number: US-BAYER-2011-124503

PATIENT
  Age: 66 Year
  Sex: Female
  Weight: 68 kg

DRUGS (4)
  1. ALEVE (CAPLET) [Suspect]
     Indication: MIGRAINE
     Dosage: 2 DF, QD
     Route: 048
  2. ALEVE (CAPLET) [Suspect]
     Indication: ARTHRITIS
  3. ALEVE (CAPLET) [Suspect]
     Indication: PAIN
  4. MULTI-VITAMIN [Concomitant]

REACTIONS (1)
  - FOREIGN BODY [None]
